FAERS Safety Report 9175238 (Version 1)
Quarter: 2013Q1

REPORT INFORMATION
  Report Type: Spontaneous
  Country: US (occurrence: US)
  Receive Date: 20130320
  Receipt Date: 20130320
  Transmission Date: 20140127
  Serious: No
  Sender: FDA-Public Use
  Company Number: US-ASTRAZENECA-2013SE11516

PATIENT
  Age: 64 Year
  Sex: Female
  Weight: 62.6 kg

DRUGS (11)
  1. METOPROLOL [Suspect]
     Route: 065
  2. CRESTOR [Suspect]
     Indication: CARDIOVASCULAR DISORDER
     Route: 048
     Dates: start: 20130107
  3. COLNAZEPAM [Concomitant]
  4. CYMBALTA [Concomitant]
  5. NEFAZDONE HCL [Concomitant]
  6. TOPIRAMATE [Concomitant]
  7. TRAZODONE [Concomitant]
  8. BUPAP [Concomitant]
  9. DULDRA INHALER [Concomitant]
  10. MIRTAZAPINE [Concomitant]
  11. ULTRAM [Concomitant]

REACTIONS (2)
  - Headache [Unknown]
  - Neck pain [Unknown]
